FAERS Safety Report 6678746-4 (Version None)
Quarter: 2010Q2

REPORT INFORMATION
  Report Type: 
  Country: None (occurrence: None)
  Receive Date: 20100412
  Receipt Date: 20100412
  Transmission Date: 20101027
  Serious: No
  Sender: FDA-Public Use
  Company Number: None

PATIENT
  Sex: Female

DRUGS (1)
  1. GADOBENATE DIMEGLUMINE [Suspect]
     Indication: SCAN WITH CONTRAST
     Dosage: 20 ML IU ONCE

REACTIONS (3)
  - CONTRAST MEDIA REACTION [None]
  - HYPOAESTHESIA ORAL [None]
  - ORAL PRURITUS [None]
